FAERS Safety Report 4578762-2 (Version None)
Quarter: 2005Q1

REPORT INFORMATION
  Report Type: 
  Country: None (occurrence: None)
  Receive Date: 20050209
  Receipt Date: 20050209
  Transmission Date: 20050727
  Serious: Yes (Hospitalization)
  Sender: FDA-Public Use
  Company Number: None

PATIENT
  Age: 71 Year
  Sex: Male
  Weight: 77.1 kg

DRUGS (6)
  1. INDOCIN [Suspect]
     Indication: GOUT
  2. PRILOSEC [Concomitant]
  3. FLOMAX [Concomitant]
  4. PRAVACHOL [Concomitant]
  5. ALLOPURINOL [Concomitant]
  6. LOTREL [Concomitant]

REACTIONS (3)
  - DECREASED APPETITE [None]
  - DIZZINESS [None]
  - FATIGUE [None]
